FAERS Safety Report 6160676-8 (Version None)
Quarter: 2009Q2

REPORT INFORMATION
  Report Type: 
  Country: None (occurrence: None)
  Receive Date: 20090420
  Receipt Date: 20090408
  Transmission Date: 20091009
  Serious: Yes (Other)
  Sender: FDA-Public Use
  Company Number: US-PFIZER INC-2008020867

PATIENT
  Sex: Female
  Weight: 73 kg

DRUGS (12)
  1. PROVERA [Suspect]
     Indication: HORMONE REPLACEMENT THERAPY
     Dosage: UNK
     Route: 048
     Dates: start: 19890101, end: 19990101
  2. PROVERA [Suspect]
     Indication: MENOPAUSE
  3. MEDROXYPROGESTERONE ACETATE [Suspect]
     Indication: HORMONE REPLACEMENT THERAPY
     Dosage: UNK
     Route: 048
     Dates: start: 19890101, end: 19991101
  4. PREMARIN [Suspect]
     Indication: HORMONE REPLACEMENT THERAPY
     Route: 048
     Dates: start: 19890101, end: 19991101
  5. PREMARIN [Suspect]
     Indication: MENOPAUSE
  6. RESTORIL [Concomitant]
     Indication: SLEEP DISORDER
     Dosage: UNK
     Dates: start: 20000301, end: 20030401
  7. PAXIL [Concomitant]
     Indication: ANTIDEPRESSANT THERAPY
     Dosage: UNK
     Dates: start: 19981101
  8. QUININE SULFATE [Concomitant]
     Indication: MUSCLE SPASMS
     Dosage: UNK
     Dates: start: 19980801, end: 20010901
  9. DARVON [Concomitant]
     Indication: PAIN
     Dosage: UNK
     Dates: start: 19941201, end: 20030201
  10. ATIVAN [Concomitant]
     Indication: ANXIOLYTIC THERAPY
     Dosage: UNK
     Dates: start: 20050301
  11. FLEXERIL [Concomitant]
     Indication: MUSCLE RELAXANT THERAPY
     Dosage: UNK
     Dates: start: 19960501, end: 20021201
  12. XALATAN [Concomitant]
     Indication: GLAUCOMA
     Dosage: UNK
     Route: 047
     Dates: start: 19970401

REACTIONS (2)
  - BONE NEOPLASM MALIGNANT [None]
  - BREAST CANCER FEMALE [None]
